FAERS Safety Report 6784869-1 (Version None)
Quarter: 2010Q2

REPORT INFORMATION
  Report Type: 
  Country: None (occurrence: None)
  Receive Date: 20100618
  Receipt Date: 20100607
  Transmission Date: 20101027
  Serious: Yes (Other)
  Sender: FDA-Public Use
  Company Number: 7007503

PATIENT
  Age: 42 Year
  Sex: Female

DRUGS (4)
  1. REBIF [Suspect]
     Indication: DRUG USE FOR UNKNOWN INDICATION
     Dosage: 44 MCG, 3 IN 1 WK, SUBCUTANEOUS ; 22 MCG, 3 IN 1 WK, SUBCUTANEOUS
     Route: 058
     Dates: start: 20100402, end: 20100101
  2. REBIF [Suspect]
     Indication: DRUG USE FOR UNKNOWN INDICATION
     Dosage: 44 MCG, 3 IN 1 WK, SUBCUTANEOUS ; 22 MCG, 3 IN 1 WK, SUBCUTANEOUS
     Route: 058
     Dates: start: 20100101
  3. PLASMAPHERESIS (ALL OTHER THERAPEUTIC PRODUCTS) [Concomitant]
  4. NERVE BLOCK (ALL OTHER THERAPEUTIC PRODUCTS) [Concomitant]

REACTIONS (4)
  - DIABETES MELLITUS [None]
  - HEADACHE [None]
  - INJECTION SITE DISCOLOURATION [None]
  - INJECTION SITE PAIN [None]
